FAERS Safety Report 8239738-7 (Version None)
Quarter: 2012Q1

REPORT INFORMATION
  Report Type: 
  Country: None (occurrence: None)
  Receive Date: 20120328
  Receipt Date: 20120322
  Transmission Date: 20120608
  Serious: Yes (Other)
  Sender: FDA-Public Use
  Company Number: JP-EISAI INC-E2090-02052-SPO-JP

PATIENT
  Age: 30 Year
  Sex: Male

DRUGS (2)
  1. LAMICTAL [Concomitant]
     Dates: start: 20100301
  2. ZONISAMIDE [Suspect]
     Indication: EPILEPSY
     Route: 048

REACTIONS (1)
  - AGRANULOCYTOSIS [None]
